FAERS Safety Report 10977541 (Version 1)
Quarter: 2015Q2

REPORT INFORMATION
  Report Type: Spontaneous
  Country: US (occurrence: None)
  Receive Date: 20150401
  Receipt Date: 20150401
  Transmission Date: 20150821
  Serious: Yes (Other)
  Sender: FDA-Public Use
  Company Number: None

PATIENT
  Age: 10 Year
  Sex: Male
  Weight: 29.48 kg

DRUGS (4)
  1. GUANFACINE HCL ER 2MG ACTAVIS PHARMA [Concomitant]
     Active Substance: GUANFACINE HYDROCHLORIDE
  2. GUANFACINE HCL ER 2MG ACTAVIS PHARMA [Suspect]
     Active Substance: GUANFACINE HYDROCHLORIDE
     Indication: ATTENTION DEFICIT/HYPERACTIVITY DISORDER
     Dosage: 1 PILL
     Route: 048
     Dates: start: 20150301, end: 20150331
  3. FOCALIN XR [Concomitant]
     Active Substance: DEXMETHYLPHENIDATE HYDROCHLORIDE
  4. CLAIRITIAN [Concomitant]

REACTIONS (6)
  - Insomnia [None]
  - Aggression [None]
  - Feeding disorder [None]
  - Depression [None]
  - Impulse-control disorder [None]
  - Emotional disorder [None]

NARRATIVE: CASE EVENT DATE: 20150331
